FAERS Safety Report 12767028 (Version 14)
Quarter: 2018Q4

REPORT INFORMATION
  Report Type: Report from Study
  Country: US (occurrence: US)
  Receive Date: 20160921
  Receipt Date: 20181226
  Transmission Date: 20190204
  Serious: Yes (Hospitalization, Other)
  Sender: FDA-Public Use
  Company Number: US-ACTELION-A-NJ2016-135370

PATIENT
  Age: 40 Year
  Sex: Female
  Weight: 61.22 kg

DRUGS (4)
  1. VELETRI [Suspect]
     Active Substance: EPOPROSTENOL
     Dosage: 43 NG/KG, PER MIN
     Route: 042
  2. VELETRI [Suspect]
     Active Substance: EPOPROSTENOL
     Indication: PULMONARY ARTERIAL HYPERTENSION
     Dosage: 25 NG/KG, PER MIN
     Route: 042
     Dates: start: 20160414
  3. OPSUMIT [Suspect]
     Active Substance: MACITENTAN
     Indication: PULMONARY ARTERIAL HYPERTENSION
     Dosage: 10 MG, QD
     Route: 048
     Dates: start: 20160322, end: 20170424
  4. RIOCIGUAT. [Concomitant]
     Active Substance: RIOCIGUAT
     Dosage: UNK
     Dates: end: 201609

REACTIONS (24)
  - Thrombocytopenia [Unknown]
  - Dyspnoea [Recovered/Resolved]
  - Pericardial effusion [Recovered/Resolved]
  - Hepatic cirrhosis [Not Recovered/Not Resolved]
  - Pulmonary arterial hypertension [Recovered/Resolved with Sequelae]
  - Nausea [Recovering/Resolving]
  - Blood creatinine increased [Not Recovered/Not Resolved]
  - Diarrhoea [Unknown]
  - Pain in jaw [Not Recovered/Not Resolved]
  - Acute kidney injury [Not Recovered/Not Resolved]
  - Right ventricular failure [Recovered/Resolved]
  - Paracentesis [Unknown]
  - Transplant evaluation [Unknown]
  - Pain [Unknown]
  - Headache [Recovered/Resolved]
  - Asthenia [Recovered/Resolved]
  - Cardiogenic shock [Unknown]
  - Vomiting [Unknown]
  - Abdominal distension [Recovered/Resolved]
  - Decreased appetite [Unknown]
  - Brain natriuretic peptide increased [Unknown]
  - Ascites [Recovered/Resolved]
  - Sleep apnoea syndrome [Unknown]
  - Palpitations [Unknown]

NARRATIVE: CASE EVENT DATE: 20160421
